FAERS Safety Report 5692143-X (Version None)
Quarter: 2008Q2

REPORT INFORMATION
  Report Type: 
  Country: None (occurrence: None)
  Receive Date: 20080328
  Receipt Date: 20070405
  Transmission Date: 20081010
  Serious: Yes (Hospitalization, Other)
  Sender: FDA-Public Use
  Company Number: 35770

PATIENT
  Age: 45 Year
  Sex: Female
  Weight: 56 kg

DRUGS (1)
  1. ADRIAMYCIN PFS [Suspect]
     Indication: HODGKIN'S DISEASE

REACTIONS (1)
  - PNEUMONITIS [None]
